FAERS Safety Report 23694063 (Version 1)
Quarter: 2024Q2

REPORT INFORMATION
  Report Type: Spontaneous
  Country: US (occurrence: US)
  Receive Date: 20240401
  Receipt Date: 20240401
  Transmission Date: 20240716
  Serious: No
  Sender: FDA-Public Use
  Company Number: US-PERRIGO-23US010902

PATIENT
  Age: 64 Year
  Sex: Male
  Weight: 117.91 kg

DRUGS (7)
  1. ACETAMINOPHEN [Suspect]
     Active Substance: ACETAMINOPHEN
     Indication: Neuropathy peripheral
     Dosage: 1300 MG, Q 12 HOURS
     Route: 048
     Dates: end: 20230810
  2. ACETAMINOPHEN [Suspect]
     Active Substance: ACETAMINOPHEN
     Dosage: 1300 MG, Q 12 HOURS
     Route: 048
     Dates: start: 20230811, end: 20230904
  3. ACETAMINOPHEN [Suspect]
     Active Substance: ACETAMINOPHEN
     Dosage: 1300 MG, Q 12 HOURS
     Route: 048
     Dates: start: 20230905
  4. OXYGEN [Concomitant]
     Active Substance: OXYGEN
     Indication: Chronic obstructive pulmonary disease
     Dosage: UNK, 24 HR
     Route: 065
     Dates: start: 2013
  5. OMEPRAZOLE [Concomitant]
     Active Substance: OMEPRAZOLE
     Indication: Gastrooesophageal reflux disease
     Dosage: UNK
     Route: 065
     Dates: start: 2000
  6. REFLUX [METOCLOPRAMIDE] [Concomitant]
     Indication: Nausea
     Dosage: UNK
     Route: 065
     Dates: start: 2000
  7. REFLUX [METOCLOPRAMIDE] [Concomitant]
     Indication: Vomiting

REACTIONS (3)
  - Therapeutic product effect decreased [Unknown]
  - Off label use [Unknown]
  - Incorrect product administration duration [Unknown]

NARRATIVE: CASE EVENT DATE: 20230904
